FAERS Safety Report 19357329 (Version 1)
Quarter: 2021Q2

REPORT INFORMATION
  Report Type: Spontaneous
  Country: US (occurrence: US)
  Receive Date: 20210601
  Receipt Date: 20210601
  Transmission Date: 20210717
  Serious: No
  Sender: FDA-Public Use
  Company Number: US-TEVA-2021-US-1913406

PATIENT
  Sex: Female

DRUGS (2)
  1. LISINOPRIL. [Suspect]
     Active Substance: LISINOPRIL
     Route: 065
  2. BISOPROLOL / HYDROCHLOROTHIAZIDE [Suspect]
     Active Substance: BISOPROLOL FUMARATE\HYDROCHLOROTHIAZIDE
     Route: 065

REACTIONS (7)
  - Product commingling [Unknown]
  - Bedridden [Unknown]
  - Drug hypersensitivity [Unknown]
  - Gait inability [Unknown]
  - Product dose omission issue [Unknown]
  - Peripheral swelling [Unknown]
  - Dyspnoea [Unknown]
